FAERS Safety Report 6171593-1 (Version None)
Quarter: 2009Q2

REPORT INFORMATION
  Report Type: 
  Country: None (occurrence: None)
  Receive Date: 20090424
  Receipt Date: 20090220
  Transmission Date: 20091009
  Serious: No
  Sender: FDA-Public Use
  Company Number: ALL1-2009-00466

PATIENT
  Age: 10 Year
  Sex: Male

DRUGS (2)
  1. VYVANSE [Suspect]
     Dosage: 30 MG, 1X/DAY:QD (MONDAY TO FRIDAY), ORAL;  50 MG, 1X/DAY:QD (MONDAY TO FRIDAY), ORAL
     Route: 048
     Dates: start: 20080101, end: 20080101
  2. VYVANSE [Suspect]
     Dosage: 30 MG, 1X/DAY:QD (MONDAY TO FRIDAY), ORAL;  50 MG, 1X/DAY:QD (MONDAY TO FRIDAY), ORAL
     Route: 048
     Dates: start: 20080101

REACTIONS (1)
  - DRUG INEFFECTIVE [None]
